FAERS Safety Report 10219848 (Version 2)
Quarter: 2014Q2

REPORT INFORMATION
  Report Type: Other
  Country: CA (occurrence: CA)
  Receive Date: 20140605
  Receipt Date: 20140605
  Transmission Date: 20141212
  Serious: Yes (Hospitalization, Other)
  Sender: FDA-Public Use
  Company Number: CA-GSKPPD-2014GSK013014

PATIENT
  Age: 59 Year
  Sex: Female

DRUGS (3)
  1. AVANDIA [Suspect]
     Indication: DIABETES MELLITUS
     Dosage: AVANDIA WAS NOT LISTED AMONG THE PATIENTS DISCHARGE RECORDS.
     Route: 048
  2. ASPIRIN [Concomitant]
  3. METOPROLOL [Concomitant]

REACTIONS (6)
  - Cardiac disorder [None]
  - Cardiac disorder [None]
  - Angina pectoris [None]
  - Coronary artery stenosis [None]
  - Angina pectoris [None]
  - Coronary artery disease [Recovered/Resolved]
